FAERS Safety Report 11219432 (Version 2)
Quarter: 2015Q3

REPORT INFORMATION
  Report Type: Spontaneous
  Country: US (occurrence: US)
  Receive Date: 20150625
  Receipt Date: 20150703
  Transmission Date: 20151125
  Serious: Yes (Other)
  Sender: FDA-Public Use
  Company Number: US-APOTEX-2015AP010154

PATIENT

DRUGS (1)
  1. ONDANSETRON HYDROCHLORIDE TABLETS USP [Suspect]
     Active Substance: ONDANSETRON HYDROCHLORIDE
     Indication: PRODUCT USED FOR UNKNOWN INDICATION
     Route: 065

REACTIONS (1)
  - Long QT syndrome [Unknown]
